FAERS Safety Report 7651648-2 (Version None)
Quarter: 2011Q3

REPORT INFORMATION
  Report Type: 
  Country: None (occurrence: None)
  Receive Date: 20110802
  Receipt Date: 20110722
  Transmission Date: 20111222
  Serious: Yes (Other)
  Sender: FDA-Public Use
  Company Number: DE-BAYER-2011-066997

PATIENT
  Age: 61 Year
  Sex: Female

DRUGS (2)
  1. NAPROXEN SODIUM [Suspect]
     Indication: BONE PAIN
     Dosage: 500 MG, BID
     Dates: start: 19750101, end: 19750101
  2. NAPROXEN SODIUM [Suspect]
     Indication: ARTHRALGIA
     Dosage: 500 MG, BID
     Dates: start: 19750101, end: 19750101

REACTIONS (1)
  - CROHN'S DISEASE [None]
